FAERS Safety Report 7773988-9 (Version None)
Quarter: 2011Q3

REPORT INFORMATION
  Report Type: 
  Country: None (occurrence: None)
  Receive Date: 20110923
  Receipt Date: 20110912
  Transmission Date: 20111222
  Serious: Yes (Other)
  Sender: FDA-Public Use
  Company Number: IT-UCBSA-038172

PATIENT
  Sex: Male

DRUGS (6)
  1. MYCOSTATIN [Concomitant]
  2. ENALAPRIL MALEATE [Concomitant]
  3. KEPPRA [Suspect]
     Indication: CLONIC CONVULSION
     Route: 048
     Dates: start: 20110712
  4. DECADRON [Concomitant]
  5. BACTRIM [Concomitant]
  6. LUMINALE [Concomitant]

REACTIONS (1)
  - PANCYTOPENIA [None]
